FAERS Safety Report 6428359-4 (Version None)
Quarter: 2009Q4

REPORT INFORMATION
  Report Type: 
  Country: None (occurrence: None)
  Receive Date: 20091105
  Receipt Date: 20091027
  Transmission Date: 20100525
  Serious: Yes (Other)
  Sender: FDA-Public Use
  Company Number: BR-ABBOTT-09P-020-0599750-00

PATIENT
  Sex: Female
  Weight: 73.6 kg

DRUGS (14)
  1. HUMIRA [Suspect]
     Indication: RHEUMATOID ARTHRITIS
     Route: 058
     Dates: start: 20070901
  2. HUMIRA [Suspect]
     Route: 058
     Dates: end: 20091013
  3. DEFLAZACORT [Concomitant]
     Indication: RHEUMATOID ARTHRITIS
     Route: 048
  4. NIMESULIDE [Concomitant]
     Indication: RHEUMATOID ARTHRITIS
     Route: 048
     Dates: start: 20060101
  5. NIMESULIDE [Concomitant]
     Indication: PAIN
     Dates: start: 20070101
  6. METHOTREXATE [Concomitant]
     Indication: RHEUMATOID ARTHRITIS
     Route: 048
     Dates: start: 20070101
  7. METHOTREXATE [Concomitant]
     Indication: DECREASED IMMUNE RESPONSIVENESS
     Route: 048
  8. ENALAPRIL [Concomitant]
     Indication: HYPERTENSION
     Route: 048
     Dates: start: 20060101
  9. ENALAPRIL [Concomitant]
     Route: 048
     Dates: start: 20010101
  10. DIMEFOR [Concomitant]
     Indication: DIABETES MELLITUS
     Route: 048
     Dates: start: 20040101
  11. DIMEFOR [Concomitant]
     Dates: start: 20010101
  12. THIAMINE [Concomitant]
     Indication: MUSCULOSKELETAL PAIN
     Route: 048
     Dates: start: 20070101
  13. CALCIUM [Concomitant]
     Indication: OSTEOARTHRITIS
     Route: 048
     Dates: start: 20090601
  14. CLONIXIN LYSINE/CYCLOBENAZAPRINE [Concomitant]
     Indication: PAIN
     Route: 048
     Dates: start: 20090701

REACTIONS (9)
  - AORTIC OCCLUSION [None]
  - ARTHRALGIA [None]
  - BONE PAIN [None]
  - DRUG INEFFECTIVE [None]
  - INFLAMMATION [None]
  - INTERVERTEBRAL DISC DISORDER [None]
  - OEDEMA PERIPHERAL [None]
  - SENSATION OF BLOOD FLOW [None]
  - VASODILATATION [None]
